FAERS Safety Report 25123244 (Version 3)
Quarter: 2025Q1

REPORT INFORMATION
  Report Type: Spontaneous
  Country: US (occurrence: US)
  Receive Date: 20250326
  Receipt Date: 20250328
  Transmission Date: 20250408
  Serious: Yes (Other)
  Sender: AMGEN
  Company Number: US-AMGEN-USASP2025057155

PATIENT
  Sex: Female

DRUGS (1)
  1. PROLIA [Suspect]
     Active Substance: DENOSUMAB
     Indication: Osteoporosis
     Route: 065
     Dates: start: 20211001, end: 20221024

REACTIONS (3)
  - Device related infection [Not Recovered/Not Resolved]
  - Medical device implantation [Unknown]
  - Osteonecrosis of jaw [Not Recovered/Not Resolved]
